FAERS Safety Report 18861946 (Version 1)
Quarter: 2021Q1

REPORT INFORMATION
  Report Type: Spontaneous
  Country: CA (occurrence: CA)
  Receive Date: 20210209
  Receipt Date: 20210209
  Transmission Date: 20210420
  Serious: Yes (Hospitalization, Other)
  Sender: FDA-Public Use
  Company Number: CA-JNJFOC-20210209880

PATIENT
  Age: 76 Year
  Sex: Female

DRUGS (1)
  1. XARELTO [Suspect]
     Active Substance: RIVAROXABAN
     Indication: ATRIAL FIBRILLATION
     Dosage: 20 MG, UNK
     Route: 048
     Dates: start: 2017

REACTIONS (9)
  - Rectal haemorrhage [Unknown]
  - Pain in extremity [Unknown]
  - Dizziness [Unknown]
  - Iron deficiency [Unknown]
  - Fatigue [Unknown]
  - Eye pain [Unknown]
  - Atrial fibrillation [Not Recovered/Not Resolved]
  - Muscular weakness [Unknown]
  - Ocular hyperaemia [Unknown]

NARRATIVE: CASE EVENT DATE: 2017
